FAERS Safety Report 5486991-9 (Version None)
Quarter: 2007Q4

REPORT INFORMATION
  Report Type: 
  Country: None (occurrence: None)
  Receive Date: 20071016
  Receipt Date: 20071009
  Transmission Date: 20080405
  Serious: Yes (Death)
  Sender: FDA-Public Use
  Company Number: JP-ELI_LILLY_AND_COMPANY-JP200709001115

PATIENT
  Sex: Female
  Weight: 38 kg

DRUGS (3)
  1. RALOXIFENE HYDROCHLORIDE [Suspect]
     Indication: OSTEOPOROSIS POSTMENOPAUSAL
     Dosage: 60 MG, DAILY (1/D)
     Route: 048
     Dates: start: 20050315, end: 20060101
  2. LOXONIN [Concomitant]
     Indication: BACK PAIN
     Dosage: UNK, AS NEEDED
     Route: 048
  3. SELBEX [Concomitant]
     Dosage: UNK, AS NEEDED
     Route: 048

REACTIONS (1)
  - DEATH [None]
